FAERS Safety Report 9317142 (Version 4)
Quarter: 2014Q1

REPORT INFORMATION
  Report Type: Spontaneous
  Country: US (occurrence: None)
  Receive Date: 20130524
  Receipt Date: 20140306
  Transmission Date: 20141002
  Serious: Yes (Disabling)
  Sender: FDA-Public Use
  Company Number: JPI-P-032048

PATIENT
  Age: 39 Year
  Sex: Female

DRUGS (1)
  1. XYREM [Suspect]
     Indication: NARCOLEPSY
     Route: 048
     Dates: start: 200504

REACTIONS (7)
  - Disability [None]
  - Craniocerebral injury [None]
  - Concussion [None]
  - Depression [None]
  - Neck pain [None]
  - Post-traumatic headache [None]
  - Road traffic accident [None]
